FAERS Safety Report 23347969 (Version 1)
Quarter: 2023Q4

REPORT INFORMATION
  Report Type: Spontaneous
  Country: US (occurrence: None)
  Receive Date: 20231228
  Receipt Date: 20231228
  Transmission Date: 20240109
  Serious: Yes (Other)
  Sender: FDA-Public Use
  Company Number: None

PATIENT
  Age: 67 Year
  Sex: Female

DRUGS (7)
  1. INFED [Suspect]
     Active Substance: IRON DEXTRAN
     Indication: Iron deficiency anaemia
     Dosage: OTHER FREQUENCY : ONCE;?
     Route: 042
     Dates: start: 20231215, end: 20231215
  2. Atorvastatin 40 mg PO daily [Concomitant]
  3. Fluoxetine 20 mg PO daily [Concomitant]
  4. Fluticasone nasal spray - one spray in each nostril twice daily [Concomitant]
  5. Furosemide 40 mg PO daily [Concomitant]
  6. Oxybutynin 15 mg PO daily [Concomitant]
  7. Symbicort 80mcg-4.5mcg - 2 puffs twice daily [Concomitant]

REACTIONS (6)
  - Abdominal pain [None]
  - Cough [None]
  - Flushing [None]
  - Hypotension [None]
  - Hypoxia [None]
  - Infusion related reaction [None]

NARRATIVE: CASE EVENT DATE: 20231215
